FAERS Safety Report 23975955 (Version 2)
Quarter: 2024Q2

REPORT INFORMATION
  Report Type: Spontaneous
  Country: GR (occurrence: GR)
  Receive Date: 20240614
  Receipt Date: 20240627
  Transmission Date: 20240716
  Serious: Yes (Other)
  Sender: FDA-Public Use
  Company Number: GR-ROCHE-3374066

PATIENT
  Age: 67 Year
  Sex: Female

DRUGS (11)
  1. DOXORUBICIN [Suspect]
     Active Substance: DOXORUBICIN
     Indication: Richter^s syndrome
     Dosage: UNK
     Route: 065
     Dates: start: 20220401, end: 20220801
  2. CYCLOPHOSPHAMIDE [Suspect]
     Active Substance: CYCLOPHOSPHAMIDE
     Indication: Richter^s syndrome
     Dosage: UNK
     Route: 065
     Dates: start: 20220401, end: 20220801
  3. RITUXIMAB [Suspect]
     Active Substance: RITUXIMAB
     Indication: Richter^s syndrome
     Dosage: UNK
     Route: 065
     Dates: start: 20220401, end: 20220801
  4. RITUXIMAB [Suspect]
     Active Substance: RITUXIMAB
     Dosage: UNK
     Route: 065
     Dates: start: 20230501, end: 20230601
  5. VINCRISTINE [Suspect]
     Active Substance: VINCRISTINE
     Indication: Richter^s syndrome
     Dosage: UNK
     Route: 065
     Dates: start: 20220401, end: 20220801
  6. ETOPOSIDE [Suspect]
     Active Substance: ETOPOSIDE
     Indication: Richter^s syndrome
     Dosage: UNK
     Route: 065
     Dates: start: 20230501, end: 20230601
  7. PREDNISONE [Suspect]
     Active Substance: PREDNISONE
     Indication: Richter^s syndrome
     Dosage: UNK
     Route: 065
     Dates: start: 20220401, end: 20220801
  8. IBRUTINIB [Suspect]
     Active Substance: IBRUTINIB
     Indication: Richter^s syndrome
     Dosage: UNK
     Route: 065
     Dates: start: 20220901, end: 20230501
  9. METHYLPREDNISOLONE [Suspect]
     Active Substance: METHYLPREDNISOLONE
     Indication: Richter^s syndrome
     Dosage: UNK
     Route: 065
     Dates: start: 20230501, end: 20230601
  10. CYTARABINE [Suspect]
     Active Substance: CYTARABINE
     Indication: Richter^s syndrome
     Dosage: UNK
     Route: 065
     Dates: start: 20230501, end: 20230601
  11. CISPLATIN [Suspect]
     Active Substance: CISPLATIN
     Indication: Richter^s syndrome
     Dosage: UNK
     Route: 065
     Dates: start: 20230501, end: 20230601

REACTIONS (1)
  - Disease progression [Unknown]
